FAERS Safety Report 19184810 (Version 1)
Quarter: 2021Q2

REPORT INFORMATION
  Report Type: Report from Study
  Country: DE (occurrence: DE)
  Receive Date: 20210427
  Receipt Date: 20210427
  Transmission Date: 20210717
  Serious: Yes (Other)
  Sender: FDA-Public Use
  Company Number: DE-TAKEDA-2021TUS025553

PATIENT
  Age: 10 Year
  Sex: Male

DRUGS (3)
  1. ADVATE [Suspect]
     Active Substance: ANTIHEMOPHILIC FACTOR, HUMAN RECOMBINANT
     Indication: FACTOR VIII DEFICIENCY
     Dosage: 4000 INTERNATIONAL UNIT, QD
     Route: 042
     Dates: start: 20210208, end: 20210414
  2. ADVATE [Suspect]
     Active Substance: ANTIHEMOPHILIC FACTOR, HUMAN RECOMBINANT
     Indication: FACTOR VIII DEFICIENCY
     Dosage: 4000 INTERNATIONAL UNIT, QD
     Route: 042
     Dates: start: 20210208, end: 20210414
  3. ADVATE [Suspect]
     Active Substance: ANTIHEMOPHILIC FACTOR, HUMAN RECOMBINANT
     Indication: FACTOR VIII DEFICIENCY
     Dosage: 4000 INTERNATIONAL UNIT, QD
     Route: 042
     Dates: start: 20210208, end: 20210414

REACTIONS (2)
  - Therapeutic product effect decreased [Unknown]
  - No adverse event [Unknown]

NARRATIVE: CASE EVENT DATE: 20210415
